FAERS Safety Report 8523849-2 (Version None)
Quarter: 2012Q3

REPORT INFORMATION
  Report Type: 
  Country: None (occurrence: None)
  Receive Date: 20120720
  Receipt Date: 20120717
  Transmission Date: 20120928
  Serious: Yes (Hospitalization)
  Sender: FDA-Public Use
  Company Number: US-B.I. PHARMACEUTICALS,INC./RIDGEFIELD-2012-BP-15911BP

PATIENT
  Sex: Male

DRUGS (1)
  1. PRADAXA [Suspect]
     Route: 048
     Dates: start: 20120101

REACTIONS (1)
  - JOINT INJURY [None]
